FAERS Safety Report 24429364 (Version 1)
Quarter: 2024Q4

REPORT INFORMATION
  Report Type: Spontaneous
  Country: DE (occurrence: DE)
  Receive Date: 20241011
  Receipt Date: 20241011
  Transmission Date: 20250114
  Serious: Yes (Death, Life-Threatening, Hospitalization, Other)
  Sender: MERCK
  Company Number: DE-PEI-202400021421

PATIENT
  Age: 76 Year
  Sex: Female
  Weight: 90 kg

DRUGS (1)
  1. KEYTRUDA [Suspect]
     Active Substance: PEMBROLIZUMAB
     Indication: Neoplasm malignant
     Dosage: 200 MILLIGRAM (2ND DOSE)
     Dates: start: 20240714

REACTIONS (3)
  - Immunotoxicity [Fatal]
  - Muscular weakness [Fatal]
  - Respiratory failure [Fatal]

NARRATIVE: CASE EVENT DATE: 20240723
